FAERS Safety Report 8880261 (Version 5)
Quarter: 2012Q4

REPORT INFORMATION
  Report Type: 
  Country: GB (occurrence: GB)
  Receive Date: 20121101
  Receipt Date: 20121130
  Transmission Date: 20130627
  Serious: Yes (Other)
  Sender: FDA-Public Use
  Company Number: PHFR2012GB005667

PATIENT
  Sex: Female

DRUGS (4)
  1. TERBINAFINE [Suspect]
     Indication: RASH
     Dosage: 250 mg, tablet
     Route: 048
     Dates: start: 1995
  2. TERBINAFINE [Suspect]
     Indication: RASH
     Dosage: Formulation: Cream
     Route: 061
  3. ANTIBIOTICS [Suspect]
     Indication: CYSTITIS
  4. ANTIBIOTICS [Suspect]
     Indication: LOWER RESPIRATORY TRACT INFECTION

REACTIONS (12)
  - Candidiasis [Unknown]
  - Suicidal ideation [Unknown]
  - Anxiety [Unknown]
  - Tinea infection [Unknown]
  - Emotional distress [Unknown]
  - Rash [Unknown]
  - Insomnia [Unknown]
  - Discomfort [Unknown]
  - Hyperhidrosis [Unknown]
  - Inflammation [Unknown]
  - Hypersensitivity [Unknown]
  - Pruritus [Unknown]
